FAERS Safety Report 7050339-9 (Version None)
Quarter: 2010Q4

REPORT INFORMATION
  Report Type: 
  Country: None (occurrence: None)
  Receive Date: 20101018
  Receipt Date: 20101011
  Transmission Date: 20110411
  Serious: Yes (Death, Hospitalization, Disabling, Other)
  Sender: FDA-Public Use
  Company Number: DK-BAYER-201041903GPV

PATIENT
  Age: 69 Year
  Sex: Male

DRUGS (13)
  1. GADOLINIUM CONTRAST [Suspect]
     Indication: SCAN WITH CONTRAST
     Route: 042
     Dates: start: 20010106, end: 20010106
  2. OMNISCAN [Suspect]
     Indication: NUCLEAR MAGNETIC RESONANCE IMAGING BRAIN
     Dosage: 0.5 MILLIMOLE(S)/ML
     Route: 042
     Dates: start: 20021203, end: 20021203
  3. OMNISCAN [Suspect]
     Dosage: 0.5 MILLIMOLE(S)/ML
     Route: 042
     Dates: start: 20000905, end: 20000905
  4. EPOITIN BETA [Concomitant]
  5. MIRTAZAPIN [Concomitant]
  6. HALOPERIDOL [Concomitant]
  7. QUININE [Concomitant]
  8. LACTULOSE [Concomitant]
  9. METOCLOPRAMID [Concomitant]
  10. CHEMOTHERAPY [Concomitant]
     Indication: LYMPH NODE CANCER METASTATIC
  11. DIALYSIS VITAMINS [Concomitant]
  12. NEORECORMON [Concomitant]
  13. REMERON [Concomitant]

REACTIONS (23)
  - ARTHRALGIA [None]
  - BONE PAIN [None]
  - DEATH [None]
  - DYSPEPSIA [None]
  - DYSPNOEA EXERTIONAL [None]
  - EPILEPSY [None]
  - FATIGUE [None]
  - GAIT DISTURBANCE [None]
  - GASTROOESOPHAGEAL REFLUX DISEASE [None]
  - HYPOAESTHESIA [None]
  - JOINT STIFFNESS [None]
  - MOBILITY DECREASED [None]
  - MUSCLE SPASMS [None]
  - MUSCULOSKELETAL PAIN [None]
  - MUSCULOSKELETAL STIFFNESS [None]
  - NEPHROGENIC SYSTEMIC FIBROSIS [None]
  - OEDEMA [None]
  - PARAESTHESIA [None]
  - PYREXIA [None]
  - RESPIRATORY DISORDER [None]
  - RESTLESS LEGS SYNDROME [None]
  - SKIN INDURATION [None]
  - TREMOR [None]
